FAERS Safety Report 9712002 (Version 1)
Quarter: 2013Q4

REPORT INFORMATION
  Report Type: Spontaneous
  Country: US (occurrence: None)
  Receive Date: 20131125
  Receipt Date: 20131125
  Transmission Date: 20140711
  Serious: Yes (Other)
  Sender: FDA-Public Use
  Company Number: None

PATIENT
  Age: 57 Year
  Sex: Female
  Weight: 90.72 kg

DRUGS (2)
  1. BACLOFEN [Suspect]
     Indication: MUSCLE SPASMS
     Dosage: 1-3XDAILY, THREE TIMES DAILY, TAKEN BY MNOUTH
     Route: 048
     Dates: start: 20131113, end: 20131119
  2. BACLOFEN [Suspect]
     Indication: SPINAL CORD INJURY
     Dosage: 1-3XDAILY, THREE TIMES DAILY, TAKEN BY MNOUTH
     Route: 048
     Dates: start: 20131113, end: 20131119

REACTIONS (3)
  - Abdominal discomfort [None]
  - Vomiting [None]
  - Urine output increased [None]
